FAERS Safety Report 7110659-6 (Version None)
Quarter: 2010Q4

REPORT INFORMATION
  Report Type: 
  Country: None (occurrence: None)
  Receive Date: 20101118
  Receipt Date: 20101111
  Transmission Date: 20110411
  Serious: Yes (Hospitalization)
  Sender: FDA-Public Use
  Company Number: US-US-EMD SERONO, INC.-7001047

PATIENT
  Sex: Female
  Weight: 96 kg

DRUGS (2)
  1. REBIF [Suspect]
     Indication: MULTIPLE SCLEROSIS
     Route: 058
     Dates: start: 20081111, end: 20100501
  2. REBIF [Suspect]
     Route: 058
     Dates: start: 20100901

REACTIONS (6)
  - BACK PAIN [None]
  - BENIGN OVARIAN TUMOUR [None]
  - ENDOMETRIAL HYPERTROPHY [None]
  - FALL [None]
  - GASTROINTESTINAL INFECTION [None]
  - LYMPHADENOPATHY [None]
